FAERS Safety Report 5830013-4 (Version None)
Quarter: 2008Q3

REPORT INFORMATION
  Report Type: 
  Country: None (occurrence: None)
  Receive Date: 20080731
  Receipt Date: 20080731
  Transmission Date: 20090109
  Serious: Yes (Other)
  Sender: FDA-Public Use
  Company Number: None

PATIENT
  Age: 51 Year
  Sex: Female
  Weight: 88.4514 kg

DRUGS (1)
  1. CIPRO [Suspect]
     Indication: CYSTITIS
     Dosage: PO
     Route: 048
     Dates: start: 20070323, end: 20070327

REACTIONS (3)
  - DIPLOPIA [None]
  - HEADACHE [None]
  - OPHTHALMOPLEGIA [None]
